FAERS Safety Report 9940850 (Version 3)
Quarter: 2014Q2

REPORT INFORMATION
  Report Type: Spontaneous
  Country: JP (occurrence: JP)
  Receive Date: 20140303
  Receipt Date: 20140409
  Transmission Date: 20141212
  Serious: Yes (Death, Life-Threatening, Other)
  Sender: FDA-Public Use
  Company Number: JP-PFIZER INC-2014057445

PATIENT
  Age: 67 Year
  Sex: Male
  Weight: 60 kg

DRUGS (1)
  1. INLYTA [Suspect]
     Indication: RENAL CELL CARCINOMA
     Dosage: 5 MG, 2X/DAY
     Route: 048
     Dates: start: 20140215

REACTIONS (5)
  - Emphysematous pyelonephritis [Fatal]
  - Renal haemorrhage [Fatal]
  - Gastrointestinal perforation [Fatal]
  - Disseminated intravascular coagulation [Fatal]
  - Ventricular fibrillation [Fatal]
